FAERS Safety Report 9082156 (Version 1)
Quarter: 2013Q1

REPORT INFORMATION
  Report Type: Report from Study
  Country: US (occurrence: US)
  Receive Date: 20130130
  Receipt Date: 20130130
  Transmission Date: 20140127
  Serious: No
  Sender: FDA-Public Use
  Company Number: US-ABBOTT-12P-163-0963809-00

PATIENT
  Age: 74 Year
  Sex: Female

DRUGS (15)
  1. HUMIRA 40 MG/0.8 ML PEN [Suspect]
     Indication: RHEUMATOID ARTHRITIS
     Route: 058
     Dates: start: 201004
  2. METHOTREXATE [Concomitant]
     Indication: RHEUMATOID ARTHRITIS
     Dosage: 7 WEEKLY
  3. FOLIC ACID [Concomitant]
     Indication: VITAMIN SUPPLEMENTATION
  4. METANX [Concomitant]
     Indication: RHEUMATOID ARTHRITIS
  5. ASPIRIN [Concomitant]
     Indication: CARDIAC DISORDER
  6. BYSTOLIC [Concomitant]
     Indication: HYPERTENSION
  7. AZOR [Concomitant]
     Indication: HYPERTENSION
     Dosage: 10/40MG ONE DAILY
  8. PROTONIX [Concomitant]
     Indication: GASTROOESOPHAGEAL REFLUX DISEASE
  9. ADVIL [Concomitant]
     Indication: PAIN
     Dosage: 800MG EVERY SIX HOURS AS NEEDED
  10. OMEGA 3 [Concomitant]
     Indication: VITAMIN SUPPLEMENTATION
  11. VITAMIN D [Concomitant]
     Indication: VITAMIN SUPPLEMENTATION
  12. COQ10 [Concomitant]
     Indication: VITAMIN SUPPLEMENTATION
  13. NEURONTIN [Concomitant]
     Indication: PAIN
  14. EFFECTER [Concomitant]
     Indication: PAIN
  15. TRAMADOL [Concomitant]
     Indication: PAIN
     Dosage: 50/100MG AS NEEDED

REACTIONS (5)
  - Stress [Not Recovered/Not Resolved]
  - Injection site pain [Not Recovered/Not Resolved]
  - Injection site papule [Not Recovered/Not Resolved]
  - Device malfunction [Not Recovered/Not Resolved]
  - Incorrect dose administered [Not Recovered/Not Resolved]
